FAERS Safety Report 13936207 (Version 1)
Quarter: 2017Q3

REPORT INFORMATION
  Report Type: Spontaneous
  Country: US (occurrence: US)
  Receive Date: 20170905
  Receipt Date: 20170905
  Transmission Date: 20171127
  Serious: Yes (Other)
  Sender: FDA-Public Use
  Company Number: None

PATIENT
  Age: 31 Year
  Sex: Male
  Weight: 73.95 kg

DRUGS (1)
  1. BUPRENORPHINE/NALOXONE [Suspect]
     Active Substance: BUPRENORPHINE\NALOXONE
     Indication: DRUG DEPENDENCE
     Route: 002
     Dates: start: 20170424, end: 20170905

REACTIONS (7)
  - Libido decreased [None]
  - Negative thoughts [None]
  - Depression [None]
  - Drug dependence [None]
  - Insomnia [None]
  - Merycism [None]
  - Abdominal discomfort [None]

NARRATIVE: CASE EVENT DATE: 20170424
